FAERS Safety Report 7722033-X (Version None)
Quarter: 2011Q3

REPORT INFORMATION
  Report Type: 
  Country: None (occurrence: None)
  Receive Date: 20110831
  Receipt Date: 20110824
  Transmission Date: 20111222
  Serious: Yes (Other)
  Sender: FDA-Public Use
  Company Number: GB-B.I. PHARMACEUTICALS,INC./RIDGEFIELD-2011-UK-00754UK

PATIENT
  Age: 79 Year
  Sex: Female
  Weight: 63.8 kg

DRUGS (6)
  1. DIPYRIDAMOLE [Suspect]
     Indication: TRANSIENT ISCHAEMIC ATTACK
     Dosage: DOSE 200MG DOSAGES/INTERVAL 2/1DAYS
     Route: 048
     Dates: start: 20101122, end: 20101201
  2. ACETAMINOPHEN [Concomitant]
  3. DIPYRIDAMOLE [Suspect]
     Dosage: DOSE 200MG, DOSAGE/INTERVAL 1/1 DAYS
     Route: 048
     Dates: start: 20101201, end: 20110131
  4. HYDROCHLOROTHIAZIDE [Concomitant]
  5. LOSARTAN [Concomitant]
  6. PROPRANOLOL [Concomitant]

REACTIONS (6)
  - DIARRHOEA [None]
  - BLOOD TEST ABNORMAL [None]
  - SERUM FERRITIN INCREASED [None]
  - LIVER FUNCTION TEST ABNORMAL [None]
  - HEPATITIS [None]
  - MALAISE [None]
